FAERS Safety Report 14537776 (Version 3)
Quarter: 2018Q1

REPORT INFORMATION
  Report Type: Report from Study
  Country: None (occurrence: US)
  Receive Date: 20180215
  Receipt Date: 20180312
  Transmission Date: 20180509
  Serious: Yes (Hospitalization)
  Sender: FDA-Public Use
  Company Number: US-ABBVIE-18K-163-2256741-00

PATIENT
  Age: 17 Year
  Sex: Female
  Weight: 39.5 kg

DRUGS (5)
  1. PENTASA [Concomitant]
     Active Substance: MESALAMINE
     Indication: CROHN^S DISEASE
  2. HUMIRA [Suspect]
     Active Substance: ADALIMUMAB
     Indication: CROHN^S DISEASE
     Route: 058
     Dates: start: 20180129, end: 20180129
  3. HUMIRA [Suspect]
     Active Substance: ADALIMUMAB
     Route: 058
     Dates: start: 20180305
  4. HUMIRA [Suspect]
     Active Substance: ADALIMUMAB
     Route: 058
     Dates: start: 20180205, end: 20180205
  5. HUMIRA [Suspect]
     Active Substance: ADALIMUMAB
     Route: 058
     Dates: start: 20180219, end: 201802

REACTIONS (3)
  - Gastrointestinal fistula [Recovering/Resolving]
  - Crohn^s disease [Unknown]
  - Abscess intestinal [Recovering/Resolving]

NARRATIVE: CASE EVENT DATE: 2018
